FAERS Safety Report 7096466-1 (Version None)
Quarter: 2010Q4

REPORT INFORMATION
  Report Type: 
  Country: None (occurrence: None)
  Receive Date: 20101027
  Receipt Date: 20101015
  Transmission Date: 20110411
  Serious: Yes (Life-Threatening, Hospitalization, Other)
  Sender: FDA-Public Use
  Company Number: THYM-1000913

PATIENT
  Age: 52 Year
  Sex: Male
  Weight: 69 kg

DRUGS (12)
  1. THYMOGLOBULIN [Suspect]
     Indication: BONE MARROW CONDITIONING REGIMEN
     Dosage: 175 MG, ONCE, INTRAVENOUS
     Route: 042
     Dates: start: 20081216, end: 20081216
  2. FLUDARABINE PHOSPHATE [Concomitant]
  3. BUSULFAN (BUSULFAN) [Concomitant]
  4. METHYLPREDNISOLONE [Concomitant]
  5. TACROLIMUS [Concomitant]
  6. METHOTREXATE [Concomitant]
  7. FILGRASTIM (FILGRASTIM) [Concomitant]
  8. VALPROATE SODIUM [Concomitant]
  9. SULFAMETHOPRIM (SULFAMETHOXZOLE, TRIMETHOPRIM) [Concomitant]
  10. CIPRO [Concomitant]
  11. FLUCONAZOLE [Concomitant]
  12. ACYCLOVIR [Concomitant]

REACTIONS (6)
  - CYSTITIS HAEMORRHAGIC [None]
  - CYTOMEGALOVIRUS INFECTION [None]
  - ENGRAFT FAILURE [None]
  - EPSTEIN-BARR VIRUS INFECTION [None]
  - FEBRILE NEUTROPENIA [None]
  - PANCYTOPENIA [None]
